FAERS Safety Report 9447923 (Version 1)
Quarter: 2013Q3

REPORT INFORMATION
  Report Type: Report from Study
  Country: US (occurrence: US)
  Receive Date: 20130808
  Receipt Date: 20130808
  Transmission Date: 20140515
  Serious: No
  Sender: FDA-Public Use
  Company Number: PHEH2013US016779

PATIENT
  Sex: Female

DRUGS (11)
  1. TASIGNA [Suspect]
     Indication: CHRONIC MYELOID LEUKAEMIA
     Dosage: 2 DF, Q12H
     Route: 048
     Dates: start: 2010
  2. TASIGNA [Suspect]
     Dosage: 2 DF, Q12H
     Route: 048
  3. ZOFRAN [Concomitant]
     Dosage: 4 MG, UNK
  4. ATENOLOL [Concomitant]
     Dosage: 25 MG, UNK
  5. ASA [Concomitant]
     Dosage: 81 MG, UNK
  6. NEURONTIN [Concomitant]
     Dosage: 800 MG, UNK
  7. COLACE [Concomitant]
     Dosage: 50 MG, UNK
  8. CYMBALTA [Concomitant]
     Dosage: 60 MG, UNK
  9. PRILOSEC [Concomitant]
     Dosage: 20 MG, UNK
  10. COQ 10 [Concomitant]
     Dosage: 200 MG, UNK
  11. PRAVASTATIN [Concomitant]
     Dosage: 40 MG, UNK

REACTIONS (2)
  - Cardiovascular disorder [Unknown]
  - Nausea [Unknown]
